FAERS Safety Report 13718641 (Version 1)
Quarter: 2017Q3

REPORT INFORMATION
  Report Type: Spontaneous
  Country: ES (occurrence: ES)
  Receive Date: 20170705
  Receipt Date: 20170705
  Transmission Date: 20171127
  Serious: Yes (Other)
  Sender: FDA-Public Use
  Company Number: ES-JNJFOC-20170627451

PATIENT

DRUGS (5)
  1. CERTOLIZUMAB [Suspect]
     Active Substance: CERTOLIZUMAB
     Indication: PRODUCT USED FOR UNKNOWN INDICATION
     Route: 065
  2. USTEKINUMAB [Suspect]
     Active Substance: USTEKINUMAB
     Indication: PRODUCT USED FOR UNKNOWN INDICATION
     Route: 058
  3. INFLIXIMAB, RECOMBINANT [Suspect]
     Active Substance: INFLIXIMAB
     Indication: PRODUCT USED FOR UNKNOWN INDICATION
     Route: 042
  4. ADALIMUMAB [Suspect]
     Active Substance: ADALIMUMAB
     Indication: PRODUCT USED FOR UNKNOWN INDICATION
     Route: 065
  5. RITUXIMAB. [Suspect]
     Active Substance: RITUXIMAB
     Indication: PRODUCT USED FOR UNKNOWN INDICATION
     Route: 065

REACTIONS (6)
  - Respiratory disorder [Unknown]
  - Skin reaction [Unknown]
  - Adverse event [Unknown]
  - Cardiovascular disorder [Unknown]
  - Skin test positive [Unknown]
  - Neurological symptom [Unknown]
